FAERS Safety Report 14333680 (Version 2)
Quarter: 2018Q1

REPORT INFORMATION
  Report Type: Spontaneous
  Country: GB (occurrence: GB)
  Receive Date: 20171228
  Receipt Date: 20180104
  Transmission Date: 20180509
  Serious: Yes (Death)
  Sender: FDA-Public Use
  Company Number: GB-PFIZER INC-2017546520

PATIENT
  Age: 72 Year
  Sex: Male

DRUGS (3)
  1. ADRENALINE (HCL) STEROP [Suspect]
     Active Substance: EPINEPHRINE
     Dosage: 10X (FURTHER NOT SPECIFIED)
     Route: 065
  2. PLASMA-LYTE 148 [Suspect]
     Active Substance: MAGNESIUM CHLORIDE\POTASSIUM CHLORIDE\SODIUM ACETATE\SODIUM CHLORIDE\SODIUM GLUCONATE
     Dosage: UNK
     Route: 065
  3. SODIUM CHLORIDE. [Suspect]
     Active Substance: SODIUM CHLORIDE
     Dosage: UNK
     Route: 065

REACTIONS (1)
  - Intestinal perforation [Fatal]
